FAERS Safety Report 7808517-4 (Version None)
Quarter: 2011Q4

REPORT INFORMATION
  Report Type: 
  Country: None (occurrence: None)
  Receive Date: 20111012
  Receipt Date: 20110930
  Transmission Date: 20120403
  Serious: Yes (Other)
  Sender: FDA-Public Use
  Company Number: FR-JNJFOC-20111000875

PATIENT
  Age: 29 Year
  Sex: Female

DRUGS (5)
  1. ENTOCORT EC [Suspect]
     Indication: CROHN'S DISEASE
     Route: 048
     Dates: start: 20110902, end: 20110912
  2. ACETAMINOPHEN AND TRAMADOL HCL [Suspect]
     Indication: CROHN'S DISEASE
     Dosage: (37.5+325MG)
     Route: 048
     Dates: start: 20110902, end: 20110912
  3. TRIMEBUTINE [Suspect]
     Indication: CROHN'S DISEASE
     Route: 048
     Dates: start: 20110902, end: 20110912
  4. POTASSIUM CHLORIDE [Concomitant]
     Indication: PRODUCT USED FOR UNKNOWN INDICATION
     Route: 065
     Dates: start: 20110902
  5. PANTOPRAZOLE [Suspect]
     Indication: CROHN'S DISEASE
     Route: 048
     Dates: start: 20110902, end: 20110912

REACTIONS (5)
  - HYPERREFLEXIA [None]
  - VISUAL IMPAIRMENT [None]
  - MALAISE [None]
  - ALTERED STATE OF CONSCIOUSNESS [None]
  - MYOCLONUS [None]
